FAERS Safety Report 25269516 (Version 2)
Quarter: 2025Q2

REPORT INFORMATION
  Report Type: Report from Study
  Country: CH (occurrence: CH)
  Receive Date: 20250505
  Receipt Date: 20250515
  Transmission Date: 20250717
  Serious: Yes (Death, Hospitalization)
  Sender: TEVA
  Company Number: CH-TEVA-VS-3327441

PATIENT
  Age: 60 Year
  Sex: Male

DRUGS (4)
  1. FOSFOMYCIN [Suspect]
     Active Substance: FOSFOMYCIN
     Indication: Klebsiella infection
     Route: 065
  2. DOXYCYCLINE [Suspect]
     Active Substance: DOXYCYCLINE
     Indication: Klebsiella infection
     Route: 065
  3. GENTAMICIN [Suspect]
     Active Substance: GENTAMICIN
     Indication: Klebsiella infection
     Route: 042
  4. COLISTIN [Suspect]
     Active Substance: COLISTIN
     Indication: Klebsiella infection
     Route: 042

REACTIONS (2)
  - Drug resistance [Fatal]
  - Drug ineffective [Fatal]
